FAERS Safety Report 5093825-3 (Version None)
Quarter: 2006Q3

REPORT INFORMATION
  Report Type: 
  Country: None (occurrence: None)
  Receive Date: 20060831
  Receipt Date: 20060823
  Transmission Date: 20061208
  Serious: Yes (Hospitalization)
  Sender: FDA-Public Use
  Company Number: FR-BAYER-200610786BFR

PATIENT
  Age: 61 Year
  Sex: Female
  Weight: 80 kg

DRUGS (3)
  1. MOXIFLOXACIN HYDROCHLORIDE [Suspect]
     Indication: UNEVALUABLE EVENT
     Dosage: TOTAL DAILY DOSE: 800 MG  UNIT DOSE: 400 MG
     Route: 048
     Dates: start: 20060706, end: 20060707
  2. ATENOLOL [Concomitant]
     Indication: UNEVALUABLE EVENT
     Dosage: TOTAL DAILY DOSE: 100 MG  UNIT DOSE: 100 MG
     Route: 048
     Dates: start: 19880101
  3. HYZAAR [Concomitant]
     Indication: UNEVALUABLE EVENT
     Dosage: TOTAL DAILY DOSE: 50 MG  UNIT DOSE: 50 MG
     Route: 048
     Dates: start: 20060201

REACTIONS (3)
  - DIFFUSE VASCULITIS [None]
  - PHOTOSENSITIVITY REACTION [None]
  - RASH MACULO-PAPULAR [None]
